FAERS Safety Report 16532693 (Version 5)
Quarter: 2019Q3

REPORT INFORMATION
  Report Type: Spontaneous
  Country: US (occurrence: US)
  Receive Date: 20190705
  Receipt Date: 20190826
  Transmission Date: 20191004
  Serious: No
  Sender: FDA-Public Use
  Company Number: US-PFIZER INC-2017407356

PATIENT
  Age: 13 Year
  Sex: Male
  Weight: 45.35 kg

DRUGS (4)
  1. GENOTROPIN [Suspect]
     Active Substance: SOMATROPIN
     Indication: GROWTH HORMONE DEFICIENCY
     Dosage: 2.6 MG, DAILY
     Dates: start: 20170228
  2. GENOTROPIN [Suspect]
     Active Substance: SOMATROPIN
     Indication: GROWTH DISORDER
     Dosage: 3 MG, DAILY
     Dates: start: 20170228
  3. GENOTROPIN [Suspect]
     Active Substance: SOMATROPIN
     Dosage: 3.2 MG, DAILY
  4. GENOTROPIN [Suspect]
     Active Substance: SOMATROPIN
     Indication: KABUKI MAKE-UP SYNDROME
     Dosage: 1.8 MG, DAILY
     Dates: start: 20170215

REACTIONS (5)
  - Product dose omission [Unknown]
  - Device issue [Unknown]
  - Madarosis [Unknown]
  - Hypertrichosis [Unknown]
  - Puberty [Unknown]

NARRATIVE: CASE EVENT DATE: 20190724
